FAERS Safety Report 18491524 (Version 1)
Quarter: 2020Q4

REPORT INFORMATION
  Report Type: Spontaneous
  Country: US (occurrence: US)
  Receive Date: 20201111
  Receipt Date: 20201111
  Transmission Date: 20210114
  Serious: Yes (Other)
  Sender: FDA-Public Use
  Company Number: US-ENDO PHARMACEUTICALS INC-2020-007147

PATIENT
  Age: 51 Year
  Sex: Female

DRUGS (2)
  1. METHYLPREDNISOLONE. [Suspect]
     Active Substance: METHYLPREDNISOLONE
     Indication: ARTHRITIS
     Dosage: 6 TABLETS ON THE FIRST DAY AND DECREASED BY ONE TABLET EACH DAY
     Route: 065
     Dates: start: 20200908, end: 20200908
  2. METHYLPREDNISOLONE. [Suspect]
     Active Substance: METHYLPREDNISOLONE
     Indication: PAIN IN EXTREMITY
     Dosage: 5 TABLETS, DECREASED BY ONE TABLET EACH DAY
     Route: 065
     Dates: start: 20200909, end: 20200909

REACTIONS (9)
  - Heart rate increased [Unknown]
  - Electrocardiogram abnormal [Unknown]
  - Cardiac disorder [Unknown]
  - Pain [Unknown]
  - Insomnia [Unknown]
  - Transient ischaemic attack [Unknown]
  - Back pain [Unknown]
  - Feeling abnormal [Unknown]
  - Ill-defined disorder [Unknown]

NARRATIVE: CASE EVENT DATE: 202009
